FAERS Safety Report 6867074-X (Version None)
Quarter: 2010Q3

REPORT INFORMATION
  Report Type: 
  Country: None (occurrence: None)
  Receive Date: 20100722
  Receipt Date: 20100628
  Transmission Date: 20110219
  Serious: Yes (Hospitalization)
  Sender: FDA-Public Use
  Company Number: A0802670A

PATIENT
  Age: 46 Year
  Sex: Male
  Weight: 95.5 kg

DRUGS (1)
  1. AVANDIA [Suspect]
     Dosage: 4MG TWICE PER DAY
     Route: 048
     Dates: start: 20000520, end: 20050503

REACTIONS (3)
  - DRESSLER'S SYNDROME [None]
  - MYOCARDIAL INFARCTION [None]
  - PLEURAL EFFUSION [None]
